FAERS Safety Report 20081871 (Version 1)
Quarter: 2021Q4

REPORT INFORMATION
  Report Type: Spontaneous
  Country: US (occurrence: US)
  Receive Date: 20211117
  Receipt Date: 20211117
  Transmission Date: 20220303
  Serious: No
  Sender: FDA-Public Use
  Company Number: US-ORGANON-O2110USA002882

PATIENT
  Age: 36 Year
  Sex: Female

DRUGS (1)
  1. DIPROLENE AF [Suspect]
     Active Substance: BETAMETHASONE DIPROPIONATE
     Indication: Granuloma skin
     Dosage: 0.05 PERCENT, TWICE DAILY FOR 2 WEEKS
     Route: 061

REACTIONS (1)
  - Product use in unapproved indication [Unknown]
